FAERS Safety Report 5907561-1 (Version None)
Quarter: 2008Q4

REPORT INFORMATION
  Report Type: 
  Country: None (occurrence: None)
  Receive Date: 20081002
  Receipt Date: 20081002
  Transmission Date: 20090506
  Serious: Yes (Other)
  Sender: FDA-Public Use
  Company Number: None

PATIENT
  Age: 56 Year
  Sex: Female
  Weight: 63.5036 kg

DRUGS (1)
  1. PYRIDOSTIGMINE BROMIDE [Suspect]
     Indication: MYASTHENIA GRAVIS
     Dosage: 30MG TWICE DAILY PO, ONGOING SINCE 2006
     Route: 048

REACTIONS (3)
  - ASTHENIA [None]
  - DRUG INEFFECTIVE [None]
  - PRODUCT QUALITY ISSUE [None]
